FAERS Safety Report 7767266-1 (Version None)
Quarter: 2011Q3

REPORT INFORMATION
  Report Type: 
  Country: None (occurrence: None)
  Receive Date: 20110922
  Receipt Date: 20110324
  Transmission Date: 20111222
  Serious: No
  Sender: FDA-Public Use
  Company Number: US-ASTRAZENECA-2011SE17257

PATIENT
  Age: 57 Year
  Sex: Female
  Weight: 122.5 kg

DRUGS (3)
  1. COUMADIN [Concomitant]
     Route: 048
  2. DEPAKOTE [Suspect]
     Route: 048
  3. SEROQUEL [Suspect]
     Indication: SCHIZOAFFECTIVE DISORDER
     Route: 048
     Dates: start: 20040101

REACTIONS (5)
  - DRUG DOSE OMISSION [None]
  - NIGHTMARE [None]
  - TREMOR [None]
  - AMNESIA [None]
  - HALLUCINATIONS, MIXED [None]
